FAERS Safety Report 5830882-8 (Version None)
Quarter: 2008Q3

REPORT INFORMATION
  Report Type: 
  Country: None (occurrence: None)
  Receive Date: 20080801
  Receipt Date: 20080721
  Transmission Date: 20090109
  Serious: Yes (Other)
  Sender: FDA-Public Use
  Company Number: US-PFIZER INC-2007061746

PATIENT
  Sex: Male
  Weight: 157.9 kg

DRUGS (13)
  1. CHANTIX [Suspect]
     Indication: SMOKING CESSATION THERAPY
     Route: 048
  2. LAMICTAL [Concomitant]
     Indication: MENTAL DISORDER
     Route: 048
  3. WELLBUTRIN [Concomitant]
     Indication: MENTAL DISORDER
     Route: 048
  4. ABILIFY [Concomitant]
     Indication: MENTAL DISORDER
     Route: 048
  5. THORAZINE [Concomitant]
     Indication: MENTAL DISORDER
     Route: 048
  6. STRATTERA [Concomitant]
     Indication: MENTAL DISORDER
     Route: 048
  7. LISINOPRIL [Concomitant]
     Route: 048
  8. INSULIN [Concomitant]
     Indication: TYPE 1 DIABETES MELLITUS
  9. ZOCOR [Concomitant]
     Indication: BLOOD CHOLESTEROL INCREASED
     Route: 048
  10. GEMFIBROZIL [Concomitant]
     Indication: LIPIDS INCREASED
     Route: 048
  11. SYNTHROID [Concomitant]
     Indication: HYPOTHYROIDISM
     Route: 048
  12. AMMONIUM LACTATE [Concomitant]
  13. BACLOFEN [Concomitant]

REACTIONS (11)
  - ABNORMAL DREAMS [None]
  - DRUG DEPENDENCE [None]
  - DRY MOUTH [None]
  - DYSGEUSIA [None]
  - HALLUCINATION [None]
  - MANIA [None]
  - MOOD SWINGS [None]
  - MUSCLE DISORDER [None]
  - MYALGIA [None]
  - TOBACCO USER [None]
  - WITHDRAWAL SYNDROME [None]
